FAERS Safety Report 7726558-2 (Version None)
Quarter: 2011Q3

REPORT INFORMATION
  Report Type: 
  Country: None (occurrence: None)
  Receive Date: 20110902
  Receipt Date: 20110824
  Transmission Date: 20111222
  Serious: Yes (Other)
  Sender: FDA-Public Use
  Company Number: PHHY2011CA62299

PATIENT
  Sex: Female

DRUGS (12)
  1. CALCIUM CARBONATE [Concomitant]
     Dosage: 1200 MG, QD
  2. NIFEDIPINE [Concomitant]
     Dosage: 10 MG, BID
  3. DICLOFENAC SODIUM [Concomitant]
     Dosage: 50 MG, UNK (PRN)
  4. VENTOLIN [Concomitant]
     Dosage: 100 UG, QID
  5. SPIRIVA [Concomitant]
     Dosage: 18 UG, QD
  6. VITAMIN D [Concomitant]
     Dosage: 3000 IU, UNK
  7. THYROXIN [Concomitant]
     Dosage: 0.125 MG, QD
  8. ACETYLSALICYLIC ACID SRT [Concomitant]
     Dosage: 325 MG, QD
  9. HYDROCHLOROTHIAZIDE [Concomitant]
     Dosage: 125 MG, QD
  10. ZOLEDRONOC ACID [Suspect]
     Indication: OSTEOPOROSIS
     Dosage: 5 MG, UNK
     Route: 042
     Dates: start: 20100817
  11. PANTOPRAZOLE [Concomitant]
     Dosage: 40 MG, QD
  12. ADVAIR DISKUS 100/50 [Concomitant]
     Dosage: 500 UKN, BID

REACTIONS (1)
  - BLOOD 25-HYDROXYCHOLECALCIFEROL DECREASED [None]
